FAERS Safety Report 25712401 (Version 1)
Quarter: 2025Q3

REPORT INFORMATION
  Report Type: Spontaneous
  Country: ID (occurrence: ID)
  Receive Date: 20250821
  Receipt Date: 20250821
  Transmission Date: 20251021
  Serious: Yes (Hospitalization)
  Sender: ALEXION PHARMACEUTICALS
  Company Number: ID-ASTRAZENECA-202508ASI014869ID

PATIENT
  Sex: Female

DRUGS (1)
  1. PULMICORT TURBUHALER [Suspect]
     Active Substance: BUDESONIDE
     Route: 065

REACTIONS (5)
  - Dyspnoea [Unknown]
  - Cough [Unknown]
  - Choking [Unknown]
  - Skin discolouration [Unknown]
  - Bronchitis [Unknown]
